FAERS Safety Report 8135096-7 (Version None)
Quarter: 2012Q1

REPORT INFORMATION
  Report Type: 
  Country: None (occurrence: None)
  Receive Date: 20120214
  Receipt Date: 20120206
  Transmission Date: 20120608
  Serious: Yes (Hospitalization)
  Sender: FDA-Public Use
  Company Number: US-GENZYME-MOZO-1000655

PATIENT
  Age: 74 Year
  Sex: Female
  Weight: 67.6 kg

DRUGS (6)
  1. MOZOBIL [Suspect]
     Indication: HAEMATOPOIETIC STEM CELL MOBILISATION
     Dosage: 13704 MCG, ONCE
     Route: 058
     Dates: start: 20120125, end: 20120125
  2. CALCIUM [Concomitant]
     Indication: PRODUCT USED FOR UNKNOWN INDICATION
  3. FILGRASTIM [Suspect]
     Indication: HAEMATOPOIETIC STEM CELL MOBILISATION
     Dosage: 570 MCG, QD
     Route: 058
     Dates: start: 20120125, end: 20120201
  4. MOZOBIL [Suspect]
     Dosage: 22840 MCG, QD
     Route: 042
     Dates: start: 20120131, end: 20120201
  5. VITAMIN D [Concomitant]
     Indication: PRODUCT USED FOR UNKNOWN INDICATION
     Dosage: UNK
     Route: 065
  6. MOZOBIL [Suspect]
     Indication: DIFFUSE LARGE B-CELL LYMPHOMA
     Dosage: 22840 MCG, QD
     Route: 042
     Dates: start: 20120130, end: 20120130

REACTIONS (3)
  - DEHYDRATION [None]
  - SPLENIC HAEMORRHAGE [None]
  - HYPOTENSION [None]
